FAERS Safety Report 9298656 (Version 3)
Quarter: 2013Q4

REPORT INFORMATION
  Report Type: Spontaneous
  Country: US (occurrence: None)
  Receive Date: 20121227
  Receipt Date: 20131226
  Transmission Date: 20140711
  Serious: Yes (Other)
  Sender: FDA-Public Use
  Company Number: PHEH2012US021860

PATIENT
  Age: 60 Year
  Sex: Female
  Weight: 80.5 kg

DRUGS (8)
  1. AFINITOR (RAD) UNKNOWN [Suspect]
     Indication: BREAST CANCER METASTATIC
     Route: 048
  2. AVIL (PHENIRAMINE AMINOSALICYLATE) [Concomitant]
  3. OXYCODONE (OXYCODONE) [Concomitant]
  4. IBUPROFEN (IBUPROFEN) [Concomitant]
  5. OMEPRAZOLE (OMEPRAZOLE) [Concomitant]
  6. EXEMESTANE (EXEMESTANE) [Concomitant]
  7. AMOXICILLIN (AMOXICILLIN) [Concomitant]
  8. CIPRO (CIPROFLOXACIN HYDROCHLORIDE) [Concomitant]

REACTIONS (3)
  - Folliculitis [None]
  - Urinary tract infection [None]
  - Rash [None]
